FAERS Safety Report 9768828 (Version 3)
Quarter: 2014Q2

REPORT INFORMATION
  Report Type: Report from Study
  Country: DE (occurrence: DE)
  Receive Date: 20131218
  Receipt Date: 20140509
  Transmission Date: 20141212
  Serious: Yes (Hospitalization)
  Sender: FDA-Public Use
  Company Number: DE-ROCHE-1062881

PATIENT
  Age: 69 Year
  Sex: Male
  Weight: 76 kg

DRUGS (24)
  1. OBINUTUZUMAB [Suspect]
     Indication: B-CELL LYMPHOMA
     Dosage: DATE OF MOST RECENT DOSE PRIOR TO SAE: 03/MAY/2012, MOST RECENT DOSE: 04 MG/ML
     Route: 042
     Dates: start: 20120118
  2. CYCLOPHOSPHAMIDE [Suspect]
     Indication: B-CELL LYMPHOMA
     Dosage: DATE OF MOST RECENT DOSE PRIOR TO SAE: 04/MAY/2012, MOST RECENT DOSE: 1440 MG
     Route: 042
     Dates: start: 20120119
  3. DOXORUBICIN [Suspect]
     Indication: B-CELL LYMPHOMA
     Dosage: DATE OF MOST RECENT DOSE PRIOR TO SAE: 04/MAY/2012, MOST RECENT DOSE: 96 MG
     Route: 042
     Dates: start: 20120119
  4. VINCRISTINE [Suspect]
     Indication: B-CELL LYMPHOMA
     Dosage: DATE OF MOST RECENT DOSE PRIOR TO SAE: 04/MAY/2012, MOST RECENT DOSE: 2 MG
     Route: 042
     Dates: start: 20120119
  5. PREDNISONE [Suspect]
     Indication: B-CELL LYMPHOMA
     Dosage: DATE OF MOST RECENT DOSE PRIOR TO SAE; 08/MAY/2012, MOST RECENT DOSE: 100 MG
     Route: 048
     Dates: start: 20120118
  6. ORPHOL [Concomitant]
  7. OTRIVEN [Concomitant]
     Indication: NASAL CONGESTION
  8. ALLOPURINOL [Concomitant]
     Indication: AZOTAEMIA
     Route: 065
     Dates: start: 20120109
  9. PANTOZOL (GERMANY) [Concomitant]
     Indication: GASTRODUODENAL ULCER
     Route: 065
  10. TOREM [Concomitant]
     Indication: RENAL FAILURE
     Route: 065
     Dates: start: 20120114
  11. KALINOR [Concomitant]
     Route: 065
     Dates: start: 20120116
  12. CIPROBAY [Concomitant]
     Route: 065
     Dates: start: 20120121
  13. COTRIM FORTE [Concomitant]
     Indication: URINARY TRACT INFECTION
     Route: 065
     Dates: start: 20120121
  14. CEFTAZIDIME [Concomitant]
     Indication: URINARY TRACT INFECTION
     Route: 065
     Dates: start: 20120423, end: 20120427
  15. CEFTAZIDIME [Concomitant]
     Indication: PYREXIA
  16. ACICLOVIR [Concomitant]
     Route: 065
     Dates: start: 20120208
  17. NEULASTA [Concomitant]
     Indication: NEUTROPENIA
     Route: 065
     Dates: start: 20120510, end: 20120510
  18. TAVEGIL [Concomitant]
     Indication: HYPERSENSITIVITY
     Route: 065
     Dates: start: 20120503, end: 20120503
  19. ZOFRAN [Concomitant]
     Indication: NAUSEA
     Route: 065
     Dates: start: 20120504, end: 20120504
  20. ZOFRAN [Concomitant]
     Indication: VOMITING
  21. DEXAMETHASON [Concomitant]
     Indication: PAIN
     Route: 065
     Dates: start: 20120504, end: 20120504
  22. FORTUM [Concomitant]
     Route: 065
     Dates: start: 20120515, end: 20120524
  23. ROXIHEXAL [Concomitant]
     Indication: URINARY TRACT INFECTION
     Route: 065
     Dates: start: 20120516, end: 20120524
  24. CEFTAZIDIM [Concomitant]
     Indication: PNEUMONIA
     Route: 065
     Dates: start: 20120515, end: 20120524

REACTIONS (4)
  - Febrile neutropenia [Recovered/Resolved]
  - Gastritis [Recovered/Resolved]
  - Anaemia [Recovered/Resolved]
  - Pneumonia [Recovered/Resolved]
